FAERS Safety Report 14554065 (Version 1)
Quarter: 2018Q1

REPORT INFORMATION
  Report Type: Spontaneous
  Country: ZA (occurrence: ZA)
  Receive Date: 20180220
  Receipt Date: 20180220
  Transmission Date: 20180509
  Serious: Yes (Life-Threatening)
  Sender: FDA-Public Use
  Company Number: PHHY2018ZA023735

PATIENT
  Age: 44 Year
  Sex: Female

DRUGS (3)
  1. DICLOFENAC [Suspect]
     Active Substance: DICLOFENAC
     Indication: URTICARIA
     Dosage: UNK
     Route: 065
     Dates: start: 2005
  2. ACETYLSALICYLIC ACID [Suspect]
     Active Substance: ASPIRIN
     Indication: URTICARIA CHRONIC
     Route: 065
  3. IBUPROFEN. [Suspect]
     Active Substance: IBUPROFEN
     Indication: URTICARIA CHRONIC
     Route: 065

REACTIONS (3)
  - Drug hypersensitivity [Unknown]
  - Product use in unapproved indication [Unknown]
  - Angioedema [Unknown]

NARRATIVE: CASE EVENT DATE: 2005
